FAERS Safety Report 8476038 (Version 2)
Quarter: 2013Q3

REPORT INFORMATION
  Report Type: Report from Study
  Country: GB (occurrence: GB)
  Receive Date: 20120326
  Receipt Date: 20130801
  Transmission Date: 20140515
  Serious: Yes (Death, Hospitalization)
  Sender: FDA-Public Use
  Company Number: GB-CELGENEUS-167-CCAZA-11110897

PATIENT
  Age: 67 Year
  Sex: Male
  Weight: 90.4 kg

DRUGS (2)
  1. AZACITIDINE INJECTABLE [Suspect]
     Indication: ACUTE MYELOID LEUKAEMIA
     Dosage: 75 MILLIGRAM/SQ. METER
     Route: 058
     Dates: start: 20111024, end: 20111030
  2. AZACITIDINE INJECTABLE [Suspect]
     Route: 058
     Dates: end: 20111116

REACTIONS (2)
  - Febrile neutropenia [Fatal]
  - Neutropenic sepsis [Fatal]
